FAERS Safety Report 5013799-0 (Version None)
Quarter: 2006Q2

REPORT INFORMATION
  Report Type: 
  Country: None (occurrence: None)
  Receive Date: 20060526
  Receipt Date: 20060526
  Transmission Date: 20061013
  Serious: No
  Sender: FDA-Public Use
  Company Number: None

PATIENT
  Age: 34 Year
  Sex: Male

DRUGS (2)
  1. POTASSIUM HYDROXIDE SOLUTION [Suspect]
     Dosage: SOLUTION
  2. ALUMINUM HYDROXIDE SOLUTION [Suspect]
     Dosage: SOLUTION

REACTIONS (4)
  - INJECTION SITE IRRITATION [None]
  - INJECTION SITE PAIN [None]
  - MEDICATION ERROR [None]
  - WRONG DRUG ADMINISTERED [None]
